FAERS Safety Report 5265603-3 (Version None)
Quarter: 2007Q1

REPORT INFORMATION
  Report Type: 
  Country: None (occurrence: None)
  Receive Date: 20061213
  Receipt Date: 20030721
  Transmission Date: 20070707
  Serious: Yes (Other)
  Sender: FDA-Public Use
  Company Number: 2003UW08292

PATIENT
  Age: 80 Year
  Sex: Female
  Weight: 70.3075 kg

DRUGS (4)
  1. IRESSA [Suspect]
     Indication: NON-SMALL CELL LUNG CANCER
     Dates: start: 20030627
  2. LIPITOR [Concomitant]
  3. PAIN MEDICATION [Concomitant]
  4. SYNTHROID [Concomitant]

REACTIONS (3)
  - BONE PAIN [None]
  - HAEMOPTYSIS [None]
  - PULMONARY CONGESTION [None]
